FAERS Safety Report 15075100 (Version 1)
Quarter: 2018Q2

REPORT INFORMATION
  Report Type: Spontaneous
  Country: US (occurrence: US)
  Receive Date: 20180627
  Receipt Date: 20180627
  Transmission Date: 20180711
  Serious: No
  Sender: FDA-Public Use
  Company Number: US-SAOL THERAPEUTICS-2017SAO03393

PATIENT
  Age: 9 Year
  Sex: Male
  Weight: 25.4 kg

DRUGS (2)
  1. BACLOFEN. [Suspect]
     Active Substance: BACLOFEN
     Indication: MUSCLE SPASTICITY
     Dosage: 75 ?G, \DAY
     Route: 037
     Dates: start: 2017
  2. BACLOFEN. [Suspect]
     Active Substance: BACLOFEN
     Indication: HYPERTONIA

REACTIONS (1)
  - Medical device discomfort [Recovering/Resolving]

NARRATIVE: CASE EVENT DATE: 20171002
